FAERS Safety Report 25454779 (Version 4)
Quarter: 2025Q3

REPORT INFORMATION
  Report Type: Report from Study
  Country: US (occurrence: US)
  Receive Date: 20250619
  Receipt Date: 20250904
  Transmission Date: 20251020
  Serious: No
  Sender: ACADIA PHARMACEUTICALS
  Company Number: US-ACADIA PHARMACEUTICALS INC.-ACA-2025-TRF-007196

PATIENT
  Age: 1 Year
  Sex: Female
  Weight: 13.1 kg

DRUGS (15)
  1. DAYBUE [Suspect]
     Active Substance: TROFINETIDE
     Indication: Rett syndrome
     Dosage: 25 MILLILITER, BID
     Route: 048
  2. ACETAMINOPHEN [Concomitant]
     Active Substance: ACETAMINOPHEN
  3. Aerochamber Plus Mask Small [Concomitant]
  4. ALBUTEROL SULFATE [Concomitant]
     Active Substance: ALBUTEROL SULFATE
  5. SODIUM CHLORIDE [Concomitant]
     Active Substance: SODIUM CHLORIDE
     Dosage: 1 SPRAY
  6. SODIUM CHLORIDE [Concomitant]
     Active Substance: SODIUM CHLORIDE
  7. Bioray Pooper [Concomitant]
  8. DME BiLeve [Concomitant]
  9. DIETARY SUPPLEMENT\HERBALS [Concomitant]
     Active Substance: DIETARY SUPPLEMENT\HERBALS
  10. FAMOTIDINE [Concomitant]
     Active Substance: FAMOTIDINE
  11. FLUTICASONE [Concomitant]
     Active Substance: FLUTICASONE
  12. IBUPROFEN [Concomitant]
     Active Substance: IBUPROFEN
  13. IPRATROPIUM [Concomitant]
     Active Substance: IPRATROPIUM
  14. MIRALAX [Concomitant]
     Active Substance: POLYETHYLENE GLYCOL 3350
  15. MONTELUKAST [Concomitant]
     Active Substance: MONTELUKAST

REACTIONS (5)
  - Rett syndrome [Not Recovered/Not Resolved]
  - Gastrooesophageal reflux disease [Not Recovered/Not Resolved]
  - Tremor [Not Recovered/Not Resolved]
  - Weight decreased [Not Recovered/Not Resolved]
  - Underdose [Unknown]

NARRATIVE: CASE EVENT DATE: 20231001
